FAERS Safety Report 6855575-X (Version None)
Quarter: 2010Q3

REPORT INFORMATION
  Report Type: 
  Country: None (occurrence: None)
  Receive Date: 20100719
  Receipt Date: 20100707
  Transmission Date: 20110219
  Serious: Yes (Hospitalization, Other)
  Sender: FDA-Public Use
  Company Number: CH-ELI_LILLY_AND_COMPANY-CH201007001975

PATIENT
  Age: 18 Year
  Sex: Male

DRUGS (2)
  1. HUMALOG [Suspect]
     Dosage: UNK UNK, AS NEEDED
     Route: 058
     Dates: end: 20100306
  2. LEVEMIR [Concomitant]
     Dosage: 26 IU, 2/D
     Route: 058
     Dates: end: 20100306

REACTIONS (3)
  - EPILEPSY [None]
  - HYPOGLYCAEMIA [None]
  - SLEEP DISORDER [None]
